FAERS Safety Report 10746931 (Version 3)
Quarter: 2016Q1

REPORT INFORMATION
  Report Type: Spontaneous
  Country: DE (occurrence: DE)
  Receive Date: 20150129
  Receipt Date: 20160317
  Transmission Date: 20160525
  Serious: Yes (Death, Hospitalization)
  Sender: FDA-Public Use
  Company Number: DE-ROCHE-1526995

PATIENT
  Age: 54 Year
  Sex: Female
  Weight: 93 kg

DRUGS (6)
  1. NATRIUMPHOSPHAT [Concomitant]
  2. POLYSORBATE 20. [Concomitant]
     Active Substance: POLYSORBATE 20
  3. AVASTIN [Suspect]
     Active Substance: BEVACIZUMAB
     Indication: OVARIAN CANCER
     Route: 065
  4. TREHALOSE [Concomitant]
  5. CARBOPLATIN. [Concomitant]
     Active Substance: CARBOPLATIN
     Route: 065
     Dates: end: 201008
  6. TAXOL [Suspect]
     Active Substance: PACLITAXEL
     Indication: OVARIAN CANCER
     Route: 065

REACTIONS (5)
  - Abdominal pain [Unknown]
  - Peritonitis [Fatal]
  - Sepsis [Fatal]
  - Gastrointestinal necrosis [Fatal]
  - Intestinal perforation [Fatal]

NARRATIVE: CASE EVENT DATE: 20150112
